FAERS Safety Report 9664257 (Version 1)
Quarter: 2013Q4

REPORT INFORMATION
  Report Type: Spontaneous
  Country: US (occurrence: US)
  Receive Date: 20131101
  Receipt Date: 20131101
  Transmission Date: 20140711
  Serious: Yes (Other)
  Sender: FDA-Public Use
  Company Number: US-ACTAVIS-2013-19315

PATIENT
  Age: 79 Year
  Sex: Female

DRUGS (1)
  1. MICONAZOLE NITRATE (AMALLC) [Suspect]
     Indication: FUNGAL INFECTION
     Dosage: ONE APPLICATION AT NIGH, DAILY
     Route: 067
     Dates: start: 201310, end: 201310

REACTIONS (1)
  - Hypertension [Recovering/Resolving]
